FAERS Safety Report 16090194 (Version 9)
Quarter: 2023Q2

REPORT INFORMATION
  Report Type: Report from Study
  Country: US (occurrence: US)
  Receive Date: 20190319
  Receipt Date: 20230516
  Transmission Date: 20230722
  Serious: No
  Sender: FDA-Public Use
  Company Number: US-SA-2019SA073110

PATIENT
  Age: 90 Year
  Sex: Male
  Weight: 64.798 kg

DRUGS (21)
  1. DUPIXENT [Suspect]
     Active Substance: DUPILUMAB
     Indication: Dermatitis atopic
     Dosage: 300 MG, QOW
     Route: 058
     Dates: start: 20181115, end: 201910
  2. DUPIXENT [Suspect]
     Active Substance: DUPILUMAB
     Dosage: UNK
     Dates: start: 202001
  3. DUPIXENT [Suspect]
     Active Substance: DUPILUMAB
     Dosage: 600 MG, 1X
     Route: 058
     Dates: start: 20230418, end: 20230418
  4. DUPIXENT [Suspect]
     Active Substance: DUPILUMAB
     Dosage: 300 MG, QOW
     Route: 058
     Dates: start: 2023
  5. CETIRIZINE HYDROCHLORIDE [Concomitant]
     Active Substance: CETIRIZINE HYDROCHLORIDE
  6. ATORVASTATIN CALCIUM [Concomitant]
     Active Substance: ATORVASTATIN CALCIUM
  7. ASPIRIN [Concomitant]
     Active Substance: ASPIRIN
  8. CALCIUM CARBONATE [Concomitant]
     Active Substance: CALCIUM CARBONATE
  9. DILTIAZEM [Concomitant]
     Active Substance: DILTIAZEM
  10. DUREZOL [Concomitant]
     Active Substance: DIFLUPREDNATE
  11. FISH OIL [Concomitant]
     Active Substance: FISH OIL
  12. LUBRICATING PLUS [Concomitant]
     Active Substance: CARBOXYMETHYLCELLULOSE SODIUM
  13. METOPROLOL TARTRATE [Concomitant]
     Active Substance: METOPROLOL TARTRATE
  14. VITAMINS [Concomitant]
     Active Substance: VITAMINS
  15. PLAVIX [Concomitant]
     Active Substance: CLOPIDOGREL BISULFATE
  16. PROAIR HFA [Concomitant]
     Active Substance: ALBUTEROL SULFATE
  17. PROBIOTIC BLEND [Concomitant]
  18. TAMSULOSIN [Concomitant]
     Active Substance: TAMSULOSIN
  19. CYANOCOBALAMIN [Concomitant]
     Active Substance: CYANOCOBALAMIN
  20. VITAMIN C [Concomitant]
     Active Substance: ASCORBIC ACID
  21. VITAMIN D3 [Concomitant]
     Active Substance: CHOLECALCIFEROL

REACTIONS (14)
  - Candida infection [Recovered/Resolved]
  - Hypoaesthesia [Unknown]
  - Skin fissures [Unknown]
  - Erythema [Unknown]
  - Skin discolouration [Unknown]
  - Pruritus [Unknown]
  - Dry skin [Unknown]
  - Dermatitis acneiform [Unknown]
  - Furuncle [Unknown]
  - Skin haemorrhage [Unknown]
  - Skin irritation [Unknown]
  - Skin exfoliation [Unknown]
  - Rash [Recovering/Resolving]
  - Drug ineffective [Unknown]

NARRATIVE: CASE EVENT DATE: 20191001
